FAERS Safety Report 7659832-9 (Version None)
Quarter: 2011Q3

REPORT INFORMATION
  Report Type: 
  Country: None (occurrence: None)
  Receive Date: 20110802
  Receipt Date: 20110721
  Transmission Date: 20111222
  Serious: Yes (Other)
  Sender: FDA-Public Use
  Company Number: DSA_47269_2011

PATIENT
  Age: 60 Year
  Sex: Female

DRUGS (1)
  1. WELLBUTRIN SR [Suspect]
     Indication: PRODUCT USED FOR UNKNOWN INDICATION
     Dosage: 350 MG OR 450 MG AS MONOTHERAPY

REACTIONS (2)
  - PETIT MAL EPILEPSY [None]
  - LOSS OF CONSCIOUSNESS [None]
